FAERS Safety Report 7082569-4 (Version None)
Quarter: 2010Q4

REPORT INFORMATION
  Report Type: 
  Country: None (occurrence: None)
  Receive Date: 20101104
  Receipt Date: 20101025
  Transmission Date: 20110411
  Serious: Yes (Hospitalization)
  Sender: FDA-Public Use
  Company Number: FR-JNJFOC-20101007360

PATIENT
  Sex: Female

DRUGS (11)
  1. HYPNOMIDATE [Suspect]
     Indication: SEDATION
     Dosage: 40 MG OF 2 MG/ML
     Route: 042
  2. HYPNOMIDATE [Suspect]
     Indication: ENDOTRACHEAL INTUBATION
     Dosage: 40 MG OF 2 MG/ML
     Route: 042
  3. RISPERDAL [Suspect]
     Indication: ILL-DEFINED DISORDER
  4. GAMMA OH [Suspect]
     Indication: ENDOTRACHEAL INTUBATION
     Dosage: 4 AMPOULES OF 10ML
     Route: 042
  5. SUCCINYLCHOLINE CHLORIDE [Suspect]
     Indication: ENDOTRACHEAL INTUBATION
     Route: 042
  6. PENTHOTAL [Concomitant]
  7. TERCIAN [Concomitant]
  8. ZOPICLONE [Concomitant]
  9. ARTANE [Concomitant]
  10. HAVLANE [Concomitant]
  11. NIMBEX [Concomitant]

REACTIONS (3)
  - CONVULSION [None]
  - DRUG SCREEN POSITIVE [None]
  - MYDRIASIS [None]
